FAERS Safety Report 14323126 (Version 1)
Quarter: 2017Q4

REPORT INFORMATION
  Report Type: Other
  Country: US (occurrence: US)
  Receive Date: 20171226
  Receipt Date: 20171226
  Transmission Date: 20180321
  Serious: Yes (Hospitalization)
  Sender: FDA-Public Use
  Company Number: US-B. BRAUN MEDICAL INC.-2037704

PATIENT
  Age: 46 Year
  Sex: Female

DRUGS (2)
  1. PROMETHAZINE [Concomitant]
     Active Substance: PROMETHAZINE\PROMETHAZINE HYDROCHLORIDE
     Route: 042
  2. HEPARIN SODIUM IN SODIUM CHLORIDE [Suspect]
     Active Substance: HEPARIN SODIUM
     Indication: CATHETER MANAGEMENT
     Route: 042

REACTIONS (13)
  - Pulmonary hypertension [None]
  - Abdominal pain [None]
  - Pneumonitis [None]
  - Cardiomegaly [None]
  - Restrictive pulmonary disease [None]
  - Liver function test increased [None]
  - Pulmonary mass [None]
  - Medication error [None]
  - Drug chemical incompatibility [None]
  - Pulmonary embolism [None]
  - Foreign body in respiratory tract [None]
  - Lymphadenopathy [None]
  - Lung abscess [None]
